FAERS Safety Report 4889923-7 (Version None)
Quarter: 2006Q1

REPORT INFORMATION
  Report Type: 
  Country: None (occurrence: None)
  Receive Date: 20060123
  Receipt Date: 20060123
  Transmission Date: 20060701
  Serious: Yes (Other)
  Sender: FDA-Public Use
  Company Number: None

PATIENT
  Age: 41 Year
  Sex: Female
  Weight: 81.6475 kg

DRUGS (5)
  1. LEVAQUIN [Suspect]
     Indication: BRONCHITIS BACTERIAL
     Dosage: 500MG  DAILY   PO
     Route: 048
     Dates: start: 20060102, end: 20060104
  2. DAYQUIL [Concomitant]
  3. NYQUIL [Concomitant]
  4. ZANTAC [Concomitant]
  5. PRIMACARE ONE -PRENATAL VIT- [Concomitant]

REACTIONS (7)
  - ANXIETY [None]
  - DIZZINESS [None]
  - DRUG HYPERSENSITIVITY [None]
  - FLUSHING [None]
  - NAUSEA [None]
  - PRURITUS GENERALISED [None]
  - WHEEZING [None]
